FAERS Safety Report 18276386 (Version 1)
Quarter: 2020Q3

REPORT INFORMATION
  Report Type: Spontaneous
  Country: ES (occurrence: ES)
  Receive Date: 20200917
  Receipt Date: 20200917
  Transmission Date: 20201103
  Serious: Yes (Hospitalization)
  Sender: FDA-Public Use
  Company Number: ES-TEVA-2020-ES-1826934

PATIENT
  Age: 86 Year
  Sex: Male

DRUGS (1)
  1. OLMESARTAN (9696A) [Suspect]
     Active Substance: OLMESARTAN
     Dosage: 20 MILLIGRAM DAILY;
     Route: 048
     Dates: start: 202005, end: 202008

REACTIONS (1)
  - Dermatitis allergic [Recovered/Resolved]

NARRATIVE: CASE EVENT DATE: 202005
